FAERS Safety Report 8900637 (Version 2)
Quarter: 2012Q4

REPORT INFORMATION
  Report Type: Report from Study
  Country: DK (occurrence: DK)
  Receive Date: 20121109
  Receipt Date: 20121227
  Transmission Date: 20130627
  Serious: Yes (Hospitalization, Other)
  Sender: FDA-Public Use
  Company Number: DK-ROCHE-1152536

PATIENT

DRUGS (3)
  1. CAPECITABINE [Suspect]
     Indication: GASTRIC CANCER
     Dosage: date of last dose prior to sae was on 01/feb/2010
     Route: 065
     Dates: start: 20090928
  2. DOCETAXEL [Suspect]
     Indication: GASTRIC CANCER
     Dosage: date of last dose prior to sae was on 01/feb/2010
     Route: 065
     Dates: start: 20090928
  3. OXALIPLATIN [Suspect]
     Indication: GASTRIC CANCER
     Dosage: date of last dose prior to sae was on 01/feb/2010
     Route: 065
     Dates: start: 20090928

REACTIONS (3)
  - Febrile neutropenia [Recovered/Resolved]
  - Infection [Unknown]
  - Necrosis [Unknown]
